FAERS Safety Report 7607911-4 (Version None)
Quarter: 2011Q3

REPORT INFORMATION
  Report Type: 
  Country: None (occurrence: None)
  Receive Date: 20110714
  Receipt Date: 20070709
  Transmission Date: 20111222
  Serious: Yes (Death, Disabling, Other)
  Sender: FDA-Public Use
  Company Number: US-BAYER-200712157BWH

PATIENT
  Age: 72 Year
  Sex: Male
  Weight: 99.773 kg

DRUGS (26)
  1. ISOSORBIDE DINITRATE [Concomitant]
     Route: 048
  2. FRESH FROZEN PLASMA [Concomitant]
     Dosage: 2 U, UNK
     Route: 042
     Dates: start: 20040721, end: 20040721
  3. ANCEF [Concomitant]
     Dosage: 1 GR, INTERVENOUS
  4. LANOXIN [Concomitant]
     Route: 048
  5. AMITRIPTYLINE HCL [Concomitant]
     Route: 048
  6. PROTONIX [Concomitant]
     Route: 048
  7. XYLOCAINE [Concomitant]
     Dosage: UNK
  8. PRIMACOR [Concomitant]
  9. PHENYLEPHRINE HCL [Concomitant]
  10. CONTRAST MEDIA [Concomitant]
     Indication: CATHETERISATION CARDIAC
     Dosage: UNK
     Dates: start: 20040719
  11. FENTANYL [Concomitant]
  12. PROTAMINE SULFATE [Concomitant]
     Dosage: 50
  13. PLATELETS [Concomitant]
     Dosage: 2 U, UNK
     Route: 042
     Dates: start: 20040721, end: 20040721
  14. COREG [Concomitant]
     Route: 048
  15. LASIX [Concomitant]
     Route: 048
  16. LISINOPRIL [Concomitant]
     Route: 048
  17. GEMFIBROZIL [Concomitant]
     Route: 048
  18. VECURONIUM BROMIDE [Concomitant]
     Dosage: 30
  19. HEPARIN [Concomitant]
  20. GLIPIZIDE [Concomitant]
     Route: 048
  21. SEVOFLURANE [Concomitant]
     Dosage: 0.4
     Route: 007
     Dates: start: 20040721
  22. MIDAZOLAM HCL [Concomitant]
  23. BENADRYL [Concomitant]
     Dosage: 50 MG, UNK
     Route: 042
  24. TRASYLOL [Suspect]
     Indication: CORONARY ARTERY BYPASS
     Dosage: 50 ML/HOUR
     Route: 042
     Dates: start: 20040721, end: 20040721
  25. DARVOCET [Concomitant]
     Route: 048
  26. RED BLOOD CELLS [Concomitant]
     Dosage: 2 U, UNK
     Route: 042
     Dates: start: 20040721, end: 20040721

REACTIONS (10)
  - RENAL FAILURE [None]
  - UNEVALUABLE EVENT [None]
  - INJURY [None]
  - PAIN [None]
  - EMOTIONAL DISTRESS [None]
  - ANHEDONIA [None]
  - ANXIETY [None]
  - FEAR [None]
  - DEPRESSION [None]
  - DEATH [None]
